FAERS Safety Report 4339862-5 (Version None)
Quarter: 2004Q2

REPORT INFORMATION
  Report Type: 
  Country: None (occurrence: None)
  Receive Date: 20040412
  Receipt Date: 20040402
  Transmission Date: 20050107
  Serious: Yes (Hospitalization)
  Sender: FDA-Public Use
  Company Number: 04P-020-0255982-00

PATIENT
  Age: 7 Year
  Sex: Male
  Weight: 34 kg

DRUGS (1)
  1. DEPAKENE [Suspect]
     Indication: FEBRILE CONVULSION
     Dosage: 6 MILLIEQUIVALENTS, IN 12 HR, PER ORAL
     Route: 048
     Dates: start: 20040101

REACTIONS (6)
  - AGITATION [None]
  - FATIGUE [None]
  - GASTRITIS [None]
  - INCONTINENCE [None]
  - PYREXIA [None]
  - TACHYCARDIA [None]
